FAERS Safety Report 16379705 (Version 2)
Quarter: 2019Q2

REPORT INFORMATION
  Report Type: Report from Study
  Country: CA (occurrence: CA)
  Receive Date: 20190531
  Receipt Date: 20190619
  Transmission Date: 20190711
  Serious: Yes (Hospitalization, Other)
  Sender: FDA-Public Use
  Company Number: PHHY2019CA121542

PATIENT
  Age: 56 Year
  Sex: Male
  Weight: 89.1 kg

DRUGS (10)
  1. METOPROLOL. [Concomitant]
     Active Substance: METOPROLOL
     Indication: PRODUCT USED FOR UNKNOWN INDICATION
     Dosage: 200 MG, UNK
     Route: 048
     Dates: start: 20161028
  2. ATORVASTATINE [Concomitant]
     Active Substance: ATORVASTATIN
     Indication: PRODUCT USED FOR UNKNOWN INDICATION
     Dosage: 80 MG, UNK
     Route: 048
     Dates: start: 20161028
  3. ACETOPHEN [Concomitant]
     Indication: PRODUCT USED FOR UNKNOWN INDICATION
     Dosage: 80 MG, UNK
     Route: 048
     Dates: start: 20161028
  4. ENTRESTO [Suspect]
     Active Substance: SACUBITRIL\VALSARTAN
     Dosage: 4 DF, (SACUBITRIL 24 MG/ VALSARTAN 26 MG) UNK
     Route: 048
     Dates: start: 20170220, end: 20170301
  5. EPLERENONE. [Concomitant]
     Active Substance: EPLERENONE
     Dosage: 25 MG, UNK
     Route: 048
     Dates: start: 20161229
  6. ENTRESTO [Suspect]
     Active Substance: SACUBITRIL\VALSARTAN
     Indication: CARDIAC FAILURE
     Dosage: 2 DF, (SACUBITRIL 24 MG/ VALSARTAN 26 MG) UNK
     Route: 048
     Dates: start: 20170210, end: 20170220
  7. ENTRESTO [Suspect]
     Active Substance: SACUBITRIL\VALSARTAN
     Dosage: 6 DF, (SACUBITRIL 24 MG/ VALSARTAN 26 MG) UNK
     Route: 048
     Dates: start: 20170301, end: 20170314
  8. ENTRESTO [Suspect]
     Active Substance: SACUBITRIL\VALSARTAN
     Dosage: 2 DF, (SACUBITRIL 97 MG/ VALSARTAN 103 MG) UNK
     Route: 048
     Dates: start: 20170314
  9. ENTRESTO [Suspect]
     Active Substance: SACUBITRIL\VALSARTAN
     Dosage: 1 DF, (SACUBITRIL 97 MG/ VALSARTAN 103 MG) BID
     Route: 048
     Dates: start: 20190314, end: 20190508
  10. EPLERENONE. [Concomitant]
     Active Substance: EPLERENONE
     Indication: PRODUCT USED FOR UNKNOWN INDICATION
     Dosage: 12.5 MG, UNK
     Route: 048
     Dates: start: 20161209, end: 20161229

REACTIONS (10)
  - Atelectasis [Recovered/Resolved]
  - Brain natriuretic peptide increased [Unknown]
  - Chest pain [Recovered/Resolved]
  - Coronary artery disease [Unknown]
  - Dyspnoea [Unknown]
  - Ejection fraction decreased [Not Recovered/Not Resolved]
  - Atrial septal defect [Unknown]
  - Hyperlipidaemia [Unknown]
  - Angina pectoris [Recovered/Resolved]
  - Atrial fibrillation [Unknown]

NARRATIVE: CASE EVENT DATE: 20190404
